FAERS Safety Report 4956448-X (Version None)
Quarter: 2006Q1

REPORT INFORMATION
  Report Type: 
  Country: None (occurrence: None)
  Receive Date: 20060328
  Receipt Date: 20060328
  Transmission Date: 20060701
  Serious: Yes (Life-Threatening, Hospitalization, Disabling)
  Sender: FDA-Public Use
  Company Number: None

PATIENT
  Age: 72 Year
  Sex: Male
  Weight: 68.0396 kg

DRUGS (1)
  1. PLAVIX [Suspect]
     Indication: ANTICOAGULANT THERAPY
     Dosage: ONCE DAILY
     Dates: start: 20050301

REACTIONS (4)
  - ASTHENIA [None]
  - CORONARY ARTERY SURGERY [None]
  - FEELING ABNORMAL [None]
  - MENTAL DISORDER [None]
